FAERS Safety Report 20513969 (Version 2)
Quarter: 2023Q1

REPORT INFORMATION
  Report Type: Spontaneous
  Country: US (occurrence: US)
  Receive Date: 20220224
  Receipt Date: 20230307
  Transmission Date: 20230418
  Serious: No
  Sender: FDA-Public Use
  Company Number: US-AMNEAL PHARMACEUTICALS-2021-AMRX-05037

PATIENT
  Sex: Female
  Weight: 53.9 kg

DRUGS (9)
  1. RYTARY [Suspect]
     Active Substance: CARBIDOPA\LEVODOPA
     Indication: Parkinson^s disease
     Dosage: 23.75/95, 1 CAPSULES, DAILY
     Route: 048
     Dates: start: 201709
  2. RYTARY [Suspect]
     Active Substance: CARBIDOPA\LEVODOPA
     Dosage: 36.25/145 MG, 2 CAPSULES, QID
     Route: 048
     Dates: end: 202201
  3. SIMVASTATIN [Concomitant]
     Active Substance: SIMVASTATIN
     Indication: Blood cholesterol increased
     Route: 065
  4. VITAMIN B12 [Concomitant]
     Active Substance: CYANOCOBALAMIN
     Indication: Product used for unknown indication
     Route: 065
  5. VITAMIN D3 [Concomitant]
     Active Substance: CHOLECALCIFEROL
     Indication: Product used for unknown indication
     Route: 065
  6. MELOXICAM [Concomitant]
     Active Substance: MELOXICAM
     Indication: Arthritis
     Route: 065
  7. PIROXICAM [Concomitant]
     Active Substance: PIROXICAM
     Indication: Anxiety
     Dosage: UNK, QD
     Route: 065
  8. CLARITHROMYCIN [Concomitant]
     Active Substance: CLARITHROMYCIN
     Indication: Sinus disorder
     Route: 065
  9. CLARITHROMYCIN [Concomitant]
     Active Substance: CLARITHROMYCIN
     Indication: Hypersensitivity

REACTIONS (5)
  - Anxiety [Unknown]
  - Drug ineffective [Unknown]
  - Depression [Recovered/Resolved]
  - Hallucination [Recovered/Resolved]
  - Dizziness [Unknown]
